FAERS Safety Report 21459065 (Version 1)
Quarter: 2022Q4

REPORT INFORMATION
  Report Type: Spontaneous
  Country: CA (occurrence: CA)
  Receive Date: 20221014
  Receipt Date: 20221014
  Transmission Date: 20230112
  Serious: Yes (Hospitalization)
  Sender: FDA-Public Use
  Company Number: CA-PFIZER INC-2020195306

PATIENT
  Age: 59 Year
  Sex: Male

DRUGS (2)
  1. SUTENT [Suspect]
     Active Substance: SUNITINIB MALATE
     Indication: Phaeochromocytoma
     Dosage: 37.5 MG
     Dates: start: 20200521
  2. SUTENT [Suspect]
     Active Substance: SUNITINIB MALATE
     Dosage: 37.5 MG ORALLY ALTERNATING DOSE SERIALLY ONCE PER DAY FOR 4 WEEKS
     Route: 048

REACTIONS (8)
  - Pain [Not Recovered/Not Resolved]
  - Neoplasm progression [Unknown]
  - White blood cell count decreased [Unknown]
  - Vomiting [Unknown]
  - Feeding disorder [Unknown]
  - Skin exfoliation [Unknown]
  - Erythema [Unknown]
  - Off label use [Unknown]
